FAERS Safety Report 10459894 (Version 1)
Quarter: 2014Q3

REPORT INFORMATION
  Report Type: Report from Study
  Country: US (occurrence: US)
  Receive Date: 20140917
  Receipt Date: 20140917
  Transmission Date: 20150326
  Serious: Yes (Hospitalization)
  Sender: FDA-Public Use
  Company Number: US-EXELIXIS-XL18414004717

PATIENT
  Age: 77 Year
  Sex: Male
  Weight: 63.95 kg

DRUGS (28)
  1. KRILL OIL [Concomitant]
     Active Substance: DIETARY SUPPLEMENT
  2. VITAMIN B-6 [Concomitant]
  3. RAPAFLO [Concomitant]
     Active Substance: SILODOSIN
  4. VITAMIN D [Concomitant]
     Active Substance: CHOLECALCIFEROL
  5. LUPRON DEPOT [Concomitant]
     Active Substance: LEUPROLIDE ACETATE
  6. MIRALAX [Concomitant]
     Active Substance: POLYETHYLENE GLYCOL 3350
  7. ZANTAC [Concomitant]
     Active Substance: RANITIDINE HYDROCHLORIDE
  8. XL184 [Suspect]
     Active Substance: CABOZANTINIB
     Indication: PROSTATE CANCER
     Dosage: 60 MG, QD
     Route: 048
     Dates: start: 20131106, end: 20131122
  9. XL184 [Suspect]
     Active Substance: CABOZANTINIB
     Dosage: 40 MG, QD
     Route: 048
     Dates: start: 20131122, end: 20140827
  10. NORVASC [Concomitant]
     Active Substance: AMLODIPINE BESYLATE
  11. ATIVAN [Concomitant]
     Active Substance: LORAZEPAM
  12. COZAAR [Concomitant]
     Active Substance: LOSARTAN POTASSIUM
  13. MAGOX [Concomitant]
  14. CALCIUM [Concomitant]
     Active Substance: CALCIUM
  15. VITAMIN C [Concomitant]
     Active Substance: ASCORBIC ACID
  16. ASCORBIC ACID/VITAMIN E [Concomitant]
  17. XGEVA [Concomitant]
     Active Substance: DENOSUMAB
  18. CALC-MAG OX-D2-MANG-BORON-SIL [Concomitant]
  19. CYANOCOBALAMIN. [Concomitant]
     Active Substance: CYANOCOBALAMIN
  20. ALEVE [Concomitant]
     Active Substance: NAPROXEN SODIUM
  21. OXYCONTIN [Concomitant]
     Active Substance: OXYCODONE HYDROCHLORIDE
  22. DOCUSATE [Concomitant]
     Active Substance: DOCUSATE
  23. DILAUDID [Concomitant]
     Active Substance: HYDROMORPHONE HYDROCHLORIDE
  24. PROBIOTIC [Concomitant]
     Active Substance: PROBIOTICS NOS
  25. POTASSIUM 99 [Concomitant]
  26. VALERIAN ROOT [Concomitant]
     Active Substance: VALERIAN
  27. LUTEIN ZEAXANTHIN [Concomitant]
  28. MEGACE [Concomitant]
     Active Substance: MEGESTROL ACETATE

REACTIONS (7)
  - Anaemia [Not Recovered/Not Resolved]
  - Platelet count decreased [None]
  - Metastases to spine [None]
  - Pulmonary mass [None]
  - Haematuria [None]
  - Hyponatraemia [Not Recovered/Not Resolved]
  - Hydronephrosis [None]

NARRATIVE: CASE EVENT DATE: 2014
